FAERS Safety Report 9115571 (Version 1)
Quarter: 2013Q1

REPORT INFORMATION
  Report Type: Spontaneous
  Country: US (occurrence: US)
  Receive Date: 20130225
  Receipt Date: 20130225
  Transmission Date: 20140127
  Serious: No
  Sender: FDA-Public Use
  Company Number: US-PFIZER INC-2013064759

PATIENT
  Age: 41 Year
  Sex: Male
  Weight: 108.84 kg

DRUGS (1)
  1. PRISTIQ [Suspect]
     Dosage: UNK, 1X/DAY
     Dates: start: 20130216

REACTIONS (1)
  - Dizziness [Unknown]
